FAERS Safety Report 8281071-1 (Version None)
Quarter: 2012Q2

REPORT INFORMATION
  Report Type: 
  Country: None (occurrence: None)
  Receive Date: 20120412
  Receipt Date: 20120330
  Transmission Date: 20120825
  Serious: Yes (Life-Threatening, Hospitalization)
  Sender: FDA-Public Use
  Company Number: TW-MYLANLABS-2012S1007109

PATIENT
  Age: 18 Year
  Sex: Female

DRUGS (1)
  1. BUPROPION HCL [Suspect]
     Indication: OVERDOSE
     Dosage: SUSTAINED-RELEASE
     Route: 048

REACTIONS (8)
  - OVERDOSE [None]
  - VENTRICULAR TACHYCARDIA [None]
  - ELECTROCARDIOGRAM QT PROLONGED [None]
  - SINUS TACHYCARDIA [None]
  - MENTAL STATUS CHANGES [None]
  - STATUS EPILEPTICUS [None]
  - METABOLIC ACIDOSIS [None]
  - HYPOTENSION [None]
